FAERS Safety Report 16156097 (Version 1)
Quarter: 2019Q2

REPORT INFORMATION
  Report Type: Spontaneous
  Country: RO (occurrence: RO)
  Receive Date: 20190404
  Receipt Date: 20190404
  Transmission Date: 20190711
  Serious: Yes (Hospitalization)
  Sender: FDA-Public Use
  Company Number: RO-ACCORD-117190

PATIENT
  Age: 61 Year
  Sex: Female

DRUGS (6)
  1. DOCETAXEL ACCORD [Suspect]
     Active Substance: DOCETAXEL
     Indication: BREAST CANCER STAGE II
     Dosage: STRENGTH 20, 3 VIALS OF 1 ML AND 1 VIAL OF 4 ML
     Route: 042
  2. DIOSMIN/HESPERIDIN [Concomitant]
     Indication: PERIPHERAL VENOUS DISEASE
     Dosage: STRENGTH 500 MG
     Route: 048
  3. CLARITINE [Concomitant]
     Active Substance: LORATADINE
     Indication: ANTIALLERGIC THERAPY
     Dosage: 10 MG/DAY
     Route: 048
  4. OSETRON [Concomitant]
     Indication: PROPHYLAXIS OF NAUSEA AND VOMITING
     Dosage: 16 MG/DAY
     Route: 042
  5. ARNETIN [Concomitant]
     Indication: HYPERCHLORHYDRIA
     Dosage: 50 MG/DAY
     Route: 042
  6. DEXAMETHASONE. [Concomitant]
     Active Substance: DEXAMETHASONE
     Dosage: 16 MG/DAY
     Route: 042

REACTIONS (5)
  - Back pain [Recovered/Resolved]
  - Sensation of foreign body [Recovered/Resolved]
  - Dyspnoea [Recovered/Resolved]
  - Hot flush [Recovered/Resolved]
  - Hyperaemia [Recovered/Resolved]

NARRATIVE: CASE EVENT DATE: 20190124
